FAERS Safety Report 6566911-6 (Version None)
Quarter: 2010Q1

REPORT INFORMATION
  Report Type: 
  Country: None (occurrence: None)
  Receive Date: 20100202
  Receipt Date: 20100128
  Transmission Date: 20100710
  Serious: Yes (Death, Disabling)
  Sender: FDA-Public Use
  Company Number: US-WYE-H03864908

PATIENT
  Sex: Female

DRUGS (1)
  1. PREMPRO [Suspect]

REACTIONS (2)
  - CEREBROVASCULAR ACCIDENT [None]
  - NON-HODGKIN'S LYMPHOMA [None]
